FAERS Safety Report 5333819-3 (Version None)
Quarter: 2007Q2

REPORT INFORMATION
  Report Type: 
  Country: None (occurrence: None)
  Receive Date: 20070524
  Receipt Date: 20070515
  Transmission Date: 20071010
  Serious: Yes (Other)
  Sender: FDA-Public Use
  Company Number: B0471965A

PATIENT
  Sex: Male

DRUGS (1)
  1. NIQUITIN CQ 4MG LOZENGE [Suspect]
     Route: 002

REACTIONS (2)
  - DEPENDENCE [None]
  - NASOPHARYNGITIS [None]
